FAERS Safety Report 23148870 (Version 3)
Quarter: 2023Q4

REPORT INFORMATION
  Report Type: Spontaneous
  Country: CN (occurrence: CN)
  Receive Date: 20231106
  Receipt Date: 20231114
  Transmission Date: 20240110
  Serious: Yes (Death, Hospitalization, Other)
  Sender: FDA-Public Use
  Company Number: CN-DSJP-DSJ-2023-144935

PATIENT
  Sex: Male

DRUGS (1)
  1. ENHERTU [Suspect]
     Active Substance: FAM-TRASTUZUMAB DERUXTECAN-NXKI
     Indication: Gastric cancer
     Dosage: UNK, 2 VIALS
     Route: 065
     Dates: start: 20231022

REACTIONS (2)
  - Pneumonia [Fatal]
  - Shock [Unknown]

NARRATIVE: CASE EVENT DATE: 20231023
